FAERS Safety Report 9524449 (Version 1)
Quarter: 2013Q1

REPORT INFORMATION
  Report Type: Spontaneous
  Country: US (occurrence: None)
  Receive Date: 20130305
  Receipt Date: 20130305
  Transmission Date: 20140127
  Serious: Yes (Other)
  Sender: FDA-Public Use
  Company Number: 163-21880-12031577

PATIENT
  Age: 59 Year
  Sex: Female

DRUGS (4)
  1. REVLIMID [Suspect]
     Indication: PLASMA CELL MYELOMA
     Route: 048
     Dates: start: 20111222, end: 20120302
  2. ASPIRIN (ACETYLSALICYLIC ACID) [Concomitant]
  3. MLN9708 (PROTEASE INHIBITORS) [Concomitant]
  4. DEXAMETHASONE (DEXAMETHASONE) [Concomitant]

REACTIONS (3)
  - Deep vein thrombosis [None]
  - Neutrophil count decreased [None]
  - Hypocalcaemia [None]
